FAERS Safety Report 14807431 (Version 1)
Quarter: 2018Q2

REPORT INFORMATION
  Report Type: Spontaneous
  Country: US (occurrence: US)
  Receive Date: 20180425
  Receipt Date: 20180425
  Transmission Date: 20180711
  Serious: No
  Sender: FDA-Public Use
  Company Number: US-BAYER-2018-078068

PATIENT
  Age: 31 Year
  Sex: Female

DRUGS (2)
  1. GADAVIST [Suspect]
     Active Substance: GADOBUTROL
     Indication: NUCLEAR MAGNETIC RESONANCE IMAGING ABDOMINAL
     Dosage: 6.6 MMOL, ONCE
     Route: 042
     Dates: start: 20180417, end: 20180417
  2. GADAVIST [Suspect]
     Active Substance: GADOBUTROL
     Indication: UTERINE LEIOMYOMA

REACTIONS (5)
  - Off label use [None]
  - Product use in unapproved indication [None]
  - Contrast media allergy [Recovered/Resolved]
  - Pruritus [Recovered/Resolved]
  - Urticaria [Recovered/Resolved]

NARRATIVE: CASE EVENT DATE: 20180417
